FAERS Safety Report 25091465 (Version 2)
Quarter: 2025Q2

REPORT INFORMATION
  Report Type: Report from Study
  Country: US (occurrence: US)
  Receive Date: 20250318
  Receipt Date: 20250401
  Transmission Date: 20250717
  Serious: No
  Sender: SANOFI AVENTIS
  Company Number: US-SANOFI-02445831

PATIENT
  Age: 82 Year
  Sex: Female

DRUGS (10)
  1. DUPILUMAB [Suspect]
     Active Substance: DUPILUMAB
     Indication: Asthma
     Dosage: 300 MG, QOW
     Route: 058
     Dates: start: 20250228
  2. OZEMPIC [Concomitant]
     Active Substance: SEMAGLUTIDE
  3. GABAPENTIN [Concomitant]
     Active Substance: GABAPENTIN
  4. TRESIBA [Concomitant]
     Active Substance: INSULIN DEGLUDEC
  5. PROPRANOLOL [Concomitant]
     Active Substance: PROPRANOLOL HYDROCHLORIDE
  6. MONTELUKAST [Concomitant]
     Active Substance: MONTELUKAST
  7. LORAZEPAM [Concomitant]
     Active Substance: LORAZEPAM
  8. AMLODIPINE [Concomitant]
     Active Substance: AMLODIPINE BESYLATE
  9. BENZONATATE [Concomitant]
     Active Substance: BENZONATATE
  10. LORATADINE [Concomitant]
     Active Substance: LORATADINE

REACTIONS (2)
  - Injection site pain [Unknown]
  - Incorrect dose administered [Unknown]

NARRATIVE: CASE EVENT DATE: 20250101
